FAERS Safety Report 15853260 (Version 1)
Quarter: 2019Q1

REPORT INFORMATION
  Report Type: Spontaneous
  Country: US (occurrence: US)
  Receive Date: 20190120
  Receipt Date: 20190120
  Transmission Date: 20190417
  Serious: Yes (Disabling)
  Sender: FDA-Public Use
  Company Number: None

PATIENT
  Age: 54 Year
  Sex: Female
  Weight: 72 kg

DRUGS (11)
  1. KRATOM [Concomitant]
     Active Substance: HERBALS\MITRAGYNINE
  2. LEVOFLOXACIN. [Suspect]
     Active Substance: LEVOFLOXACIN
     Indication: INTERSTITIAL LUNG DISEASE
     Dosage: ?          QUANTITY:1 CAPSULE(S);?
     Route: 048
  3. GABAPENTIN. [Concomitant]
     Active Substance: GABAPENTIN
  4. VENTOLIN [Concomitant]
     Active Substance: ALBUTEROL SULFATE
  5. TUMS [Concomitant]
     Active Substance: CALCIUM CARBONATE
  6. ROPINIROLE. [Concomitant]
     Active Substance: ROPINIROLE
  7. ZANTAC [Concomitant]
     Active Substance: RANITIDINE HYDROCHLORIDE
  8. ZOLOFT [Concomitant]
     Active Substance: SERTRALINE HYDROCHLORIDE
  9. COMBIVENT [Concomitant]
     Active Substance: ALBUTEROL SULFATE\IPRATROPIUM BROMIDE
  10. TIZANIDINE. [Concomitant]
     Active Substance: TIZANIDINE
  11. ADVAIR HFA [Concomitant]
     Active Substance: FLUTICASONE PROPIONATE\SALMETEROL XINAFOATE

REACTIONS (24)
  - Spinal disorder [None]
  - Diplopia [None]
  - Muscle disorder [None]
  - Panic disorder [None]
  - Temperature regulation disorder [None]
  - Tendonitis [None]
  - Depression [None]
  - Fatigue [None]
  - Loss of personal independence in daily activities [None]
  - Temperature intolerance [None]
  - Bedridden [None]
  - Arthropathy [None]
  - Tremor [None]
  - Joint noise [None]
  - Insomnia [None]
  - Bone disorder [None]
  - Disturbance in attention [None]
  - Memory impairment [None]
  - Mental impairment [None]
  - Neuropathy peripheral [None]
  - Dyskinesia [None]
  - Pain [None]
  - Asthenia [None]
  - Quality of life decreased [None]

NARRATIVE: CASE EVENT DATE: 20161130
